FAERS Safety Report 7507440-2 (Version None)
Quarter: 2011Q2

REPORT INFORMATION
  Report Type: 
  Country: None (occurrence: None)
  Receive Date: 20110526
  Receipt Date: 20110517
  Transmission Date: 20111010
  Serious: Yes (Other)
  Sender: FDA-Public Use
  Company Number: PHHY2011GB42133

PATIENT
  Age: 41 Year
  Sex: Female

DRUGS (3)
  1. CANDESARTAN CILEXETIL [Suspect]
     Dosage: UNK UKN, UNK
  2. BECLOMETHASONE [Suspect]
     Dosage: UNK UKN, UNK
  3. ALBUTEROL [Suspect]
     Dosage: UNK UKN, UNK

REACTIONS (4)
  - ANTEPARTUM HAEMORRHAGE [None]
  - DRUG EXPOSURE DURING PREGNANCY [None]
  - OLIGOHYDRAMNIOS [None]
  - PREMATURE LABOUR [None]
